FAERS Safety Report 9687248 (Version 13)
Quarter: 2015Q4

REPORT INFORMATION
  Report Type: Report from Study
  Country: CA (occurrence: CA)
  Receive Date: 20131113
  Receipt Date: 20151209
  Transmission Date: 20160305
  Serious: Yes (Other)
  Sender: FDA-Public Use
  Company Number: CA-ROCHE-1193666

PATIENT
  Age: 56 Year
  Sex: Male
  Weight: 82.7 kg

DRUGS (4)
  1. LEFLUNOMIDE. [Concomitant]
     Active Substance: LEFLUNOMIDE
  2. ACTEMRA [Suspect]
     Active Substance: TOCILIZUMAB
     Indication: RHEUMATOID ARTHRITIS
     Route: 042
     Dates: start: 20100831
  3. PREDNISONE. [Concomitant]
     Active Substance: PREDNISONE
  4. ATORVASTATIN [Concomitant]
     Active Substance: ATORVASTATIN

REACTIONS (16)
  - Lung infection [Not Recovered/Not Resolved]
  - Fatigue [Recovering/Resolving]
  - Lung infection [Not Recovered/Not Resolved]
  - Weight decreased [Unknown]
  - Peripheral swelling [Recovering/Resolving]
  - Depressed mood [Recovered/Resolved]
  - Malaise [Unknown]
  - Gastroenteritis viral [Recovering/Resolving]
  - Heart rate decreased [Unknown]
  - Malaise [Not Recovered/Not Resolved]
  - Pain [Recovering/Resolving]
  - Drug dose omission [Unknown]
  - Lower respiratory tract infection [Unknown]
  - Infusion related reaction [Unknown]
  - Upper limb fracture [Unknown]
  - Finger deformity [Recovering/Resolving]

NARRATIVE: CASE EVENT DATE: 2013
